FAERS Safety Report 20325332 (Version 1)
Quarter: 2022Q1

REPORT INFORMATION
  Report Type: Spontaneous
  Country: CA (occurrence: CA)
  Receive Date: 20220112
  Receipt Date: 20220112
  Transmission Date: 20220423
  Serious: Yes (Life-Threatening, Hospitalization, Other)
  Sender: FDA-Public Use
  Company Number: CA-BRISTOL-MYERS SQUIBB COMPANY-BMS-2022-003749

PATIENT
  Age: 77 Year
  Sex: Male

DRUGS (3)
  1. IPILIMUMAB [Suspect]
     Active Substance: IPILIMUMAB
     Indication: Product used for unknown indication
     Dosage: 80 MILLIGRAM, Q3WK
     Route: 042
  2. CARBOCYSTEINE [Suspect]
     Active Substance: CARBOCYSTEINE
     Indication: Product used for unknown indication
     Dosage: 240 MILLIGRAM, Q3WK
     Route: 042
  3. METHACYCLINE [Suspect]
     Active Substance: METHACYCLINE

REACTIONS (6)
  - Adverse event [Unknown]
  - Hospitalisation [Unknown]
  - Myocarditis [Unknown]
  - Pulmonary hypertension [Unknown]
  - Pruritus [Unknown]
  - Urticaria [Unknown]
